FAERS Safety Report 21938328 (Version 1)
Quarter: 2023Q1

REPORT INFORMATION
  Report Type: Spontaneous
  Country: US (occurrence: US)
  Receive Date: 20230201
  Receipt Date: 20230201
  Transmission Date: 20230417
  Serious: No
  Sender: FDA-Public Use
  Company Number: US-PFIZER INC-PV202300017694

PATIENT
  Age: 84 Year
  Sex: Female

DRUGS (11)
  1. IBRANCE [Suspect]
     Active Substance: PALBOCICLIB
     Dosage: OD X 21 DAYS THEN OFF FOR 7 DAYS
     Route: 048
     Dates: start: 20221212
  2. ACETAMINOPHEN [Concomitant]
     Active Substance: ACETAMINOPHEN
  3. DORZOLAMIDE [Concomitant]
     Active Substance: DORZOLAMIDE
     Dosage: 2% OPHTH SOLN 10 ML
  4. LATANOPROST [Concomitant]
     Active Substance: LATANOPROST
     Dosage: 0.005% OPHTH SOLN 5 ML
  5. PROLIA [Concomitant]
     Active Substance: DENOSUMAB
     Dosage: 1 ML
  6. CALCIUM [Concomitant]
     Active Substance: CALCIUM
  7. FISH OIL [Concomitant]
     Active Substance: FISH OIL
  8. MAGNESIUM OXIDE [Concomitant]
     Active Substance: MAGNESIUM OXIDE
  9. PILOCARPINE [Concomitant]
     Active Substance: PILOCARPINE
     Dosage: 1% OPHTH SOLN 15 ML
  10. PYRIDOXINE [Concomitant]
     Active Substance: PYRIDOXINE
  11. VITAMIN C [Concomitant]
     Active Substance: ASCORBIC ACID

REACTIONS (1)
  - Alopecia [Not Recovered/Not Resolved]
